FAERS Safety Report 6508830-7 (Version None)
Quarter: 2009Q4

REPORT INFORMATION
  Report Type: 
  Country: None (occurrence: None)
  Receive Date: 20091221
  Receipt Date: 20090909
  Transmission Date: 20100525
  Serious: No
  Sender: FDA-Public Use
  Company Number: US-ASTRAZENECA-2009SE09179

PATIENT
  Age: 72 Year
  Sex: Male

DRUGS (6)
  1. CRESTOR [Suspect]
     Indication: BLOOD CHOLESTEROL
     Route: 048
     Dates: start: 20090615, end: 20090819
  2. ASPIRIN [Concomitant]
  3. COREG [Concomitant]
  4. LASIX [Concomitant]
  5. POTASSIUM [Concomitant]
  6. LISINOPRIL [Concomitant]

REACTIONS (3)
  - BLOOD CHOLESTEROL INCREASED [None]
  - DRUG INEFFECTIVE [None]
  - LOW DENSITY LIPOPROTEIN INCREASED [None]
